FAERS Safety Report 5755409-0 (Version None)
Quarter: 2008Q2

REPORT INFORMATION
  Report Type: 
  Country: None (occurrence: None)
  Receive Date: 20080602
  Receipt Date: 20080523
  Transmission Date: 20081010
  Serious: Yes (Hospitalization)
  Sender: FDA-Public Use
  Company Number: US-JNJFOC-20080505142

PATIENT
  Sex: Female
  Weight: 64.86 kg

DRUGS (4)
  1. REMICADE [Suspect]
     Route: 042
  2. REMICADE [Suspect]
     Indication: CROHN'S DISEASE
     Route: 042
  3. HUMIRA [Concomitant]
     Indication: CROHN'S DISEASE
  4. BENTYL [Concomitant]
     Indication: MUSCLE SPASMS

REACTIONS (2)
  - APPENDICITIS [None]
  - DRUG INEFFECTIVE [None]
